FAERS Safety Report 19313947 (Version 1)
Quarter: 2021Q2

REPORT INFORMATION
  Report Type: Report from Study
  Country: US (occurrence: US)
  Receive Date: 20210527
  Receipt Date: 20210527
  Transmission Date: 20210717
  Serious: Yes (Hospitalization, Other)
  Sender: FDA-Public Use
  Company Number: US-MYLANLABS-2021M1030601

PATIENT
  Sex: Male

DRUGS (3)
  1. CARBOPLATIN. [Suspect]
     Active Substance: CARBOPLATIN
     Indication: RETINOBLASTOMA
     Dosage: OAC REGIMEN: 5 CYCLES...
     Route: 013
  2. MELPHALAN. [Suspect]
     Active Substance: MELPHALAN
     Indication: RETINOBLASTOMA
     Dosage: OAC REGIMEN: 5 CYCLES ...
     Route: 013
  3. TOPOTECAN [Suspect]
     Active Substance: TOPOTECAN HYDROCHLORIDE
     Indication: RETINOBLASTOMA
     Dosage: OAC REGIMEN: 5 CYCLES ..
     Route: 013

REACTIONS (3)
  - Cytopenia [Unknown]
  - Haematotoxicity [Unknown]
  - Off label use [Unknown]
